FAERS Safety Report 10154501 (Version 1)
Quarter: 2014Q2

REPORT INFORMATION
  Report Type: Spontaneous
  Country: US (occurrence: US)
  Receive Date: 20140506
  Receipt Date: 20140506
  Transmission Date: 20141212
  Serious: Yes (Other)
  Sender: FDA-Public Use
  Company Number: US-PFIZER INC-2014121810

PATIENT
  Sex: Male

DRUGS (2)
  1. ADVIL CONGESTION RELIEF [Suspect]
     Dosage: UNK
  2. ADVIL CONGESTION RELIEF [Suspect]
     Dosage: 4 DF, UNK

REACTIONS (3)
  - Extra dose administered [Unknown]
  - Haematemesis [Unknown]
  - Abdominal pain upper [Unknown]
